FAERS Safety Report 20966501 (Version 1)
Quarter: 2022Q2

REPORT INFORMATION
  Report Type: Spontaneous
  Country: US (occurrence: None)
  Receive Date: 20220615
  Receipt Date: 20220615
  Transmission Date: 20220721
  Serious: Yes (unspecified)
  Sender: FDA-Public Use
  Company Number: None

PATIENT
  Age: 90 Year
  Sex: Female
  Weight: 77.4 kg

DRUGS (5)
  1. PACLITAXEL [Suspect]
     Active Substance: PACLITAXEL
     Indication: Endometrial cancer
     Dosage: OTHER FREQUENCY : EVERY 7 DAYS;?
     Route: 042
     Dates: start: 20220608
  2. PALONOSETRON [Concomitant]
     Active Substance: PALONOSETRON
     Dates: start: 20220608
  3. DEXAMETHASONE [Concomitant]
     Active Substance: DEXAMETHASONE
     Dates: start: 20220608
  4. DIPHENHYDRAMINE [Concomitant]
     Active Substance: DIPHENHYDRAMINE
     Dates: start: 20220608
  5. FAMOTIDINE [Concomitant]
     Active Substance: FAMOTIDINE
     Dates: start: 20220608

REACTIONS (8)
  - Unresponsive to stimuli [None]
  - Hypoxia [None]
  - Infusion related reaction [None]
  - Blood pressure increased [None]
  - Oxygen saturation decreased [None]
  - Unresponsive to stimuli [None]
  - Pallor [None]
  - Lethargy [None]

NARRATIVE: CASE EVENT DATE: 20220608
